FAERS Safety Report 16218119 (Version 1)
Quarter: 2019Q2

REPORT INFORMATION
  Report Type: Spontaneous
  Country: ES (occurrence: ES)
  Receive Date: 20190419
  Receipt Date: 20190419
  Transmission Date: 20190711
  Serious: Yes (Hospitalization)
  Sender: FDA-Public Use
  Company Number: ES-PFIZER INC-2019163621

PATIENT
  Age: 87 Year
  Sex: Male

DRUGS (2)
  1. DILTIAZEM HCL [Suspect]
     Active Substance: DILTIAZEM HYDROCHLORIDE
     Dosage: UNK
     Dates: start: 20140610, end: 2018
  2. DIGOXIN. [Suspect]
     Active Substance: DIGOXIN
     Dosage: UNK
     Dates: start: 20101120, end: 2018

REACTIONS (1)
  - Atrial fibrillation [Recovered/Resolved]

NARRATIVE: CASE EVENT DATE: 20181126
